FAERS Safety Report 5097192-0 (Version None)
Quarter: 2006Q3

REPORT INFORMATION
  Report Type: 
  Country: None (occurrence: None)
  Receive Date: 20060906
  Receipt Date: 20060901
  Transmission Date: 20061208
  Serious: Yes (Hospitalization)
  Sender: FDA-Public Use
  Company Number: DE-BAYER-200611149BVD

PATIENT
  Age: 74 Year
  Sex: Male
  Weight: 82 kg

DRUGS (10)
  1. SORAFENIB [Suspect]
     Indication: RENAL CELL CARCINOMA STAGE UNSPECIFIED
     Dosage: TOTAL DAILY DOSE: 800 MG  UNIT DOSE: 400 MG
     Route: 048
     Dates: start: 20060106
  2. VALSARTAN [Concomitant]
     Indication: HYPERTENSION
     Route: 048
     Dates: start: 20050101
  3. ENAHEXAL [Concomitant]
     Indication: HYPERTENSION
     Dates: start: 20050101
  4. AMLODIPINE [Concomitant]
     Indication: HYPERTENSION
     Route: 048
     Dates: start: 20050101
  5. METOPROLOL TARTRATE [Concomitant]
     Indication: HYPERTENSION
     Route: 048
     Dates: start: 20050101
  6. TORSEMIDE [Concomitant]
     Indication: HYPERTENSION
     Route: 048
     Dates: start: 20050101
  7. GABAPENTIN [Concomitant]
     Indication: PAIN
     Route: 048
     Dates: start: 20041201
  8. ACETYLCYSTEINE [Concomitant]
     Route: 048
     Dates: start: 20051101
  9. LORAZEPAM [Concomitant]
     Indication: SLEEP DISORDER
     Route: 048
     Dates: start: 20050101
  10. CIPROFLOXACIN [Concomitant]
     Indication: PNEUMONIA
     Route: 048
     Dates: start: 20051219, end: 20060102

REACTIONS (6)
  - ATELECTASIS [None]
  - ATRIAL FIBRILLATION [None]
  - DYSPNOEA [None]
  - METASTASES TO LUNG [None]
  - OEDEMA PERIPHERAL [None]
  - PNEUMONIA [None]
